FAERS Safety Report 6044938-0 (Version None)
Quarter: 2009Q1

REPORT INFORMATION
  Report Type: 
  Country: None (occurrence: None)
  Receive Date: 20090116
  Receipt Date: 20090116
  Transmission Date: 20090719
  Serious: No
  Sender: FDA-Public Use
  Company Number: None

PATIENT
  Age: 45 Year
  Sex: Female

DRUGS (4)
  1. AMBIEN CR [Suspect]
     Dosage: 12.5 MG ONCE QHS PO
     Route: 048
     Dates: start: 20081223, end: 20081228
  2. CARISOPRODOL [Concomitant]
  3. CYMBALTA [Concomitant]
  4. ROPINIROLE [Concomitant]

REACTIONS (2)
  - AMNESIA [None]
  - ROAD TRAFFIC ACCIDENT [None]
